FAERS Safety Report 4524061-4 (Version None)
Quarter: 2004Q4

REPORT INFORMATION
  Report Type: 
  Country: None (occurrence: None)
  Receive Date: 20041119
  Receipt Date: 20040824
  Transmission Date: 20050328
  Serious: No
  Sender: FDA-Public Use
  Company Number: PHEH2004US09150

PATIENT
  Sex: Female

DRUGS (1)
  1. ZELNORM [Suspect]

REACTIONS (1)
  - DRY MOUTH [None]
